FAERS Safety Report 11507079 (Version 1)
Quarter: 2015Q3

REPORT INFORMATION
  Report Type: Report from Study
  Country: VE (occurrence: VE)
  Receive Date: 20150915
  Receipt Date: 20150915
  Transmission Date: 20151125
  Serious: Yes (Other)
  Sender: FDA-Public Use
  Company Number: PHHY2015VE109605

PATIENT
  Sex: Female

DRUGS (14)
  1. TRILEPTAL [Suspect]
     Active Substance: OXCARBAZEPINE
     Dosage: 300 MG, QD (1 YEAR AGO)
     Route: 065
  2. EUTIROX [Concomitant]
     Active Substance: LEVOTHYROXINE SODIUM
     Indication: THYROID DISORDER
     Dosage: 100 MG, QD (7 YEARS AGO)
     Route: 065
  3. TRAMINAL [Concomitant]
     Indication: SEIZURE
     Dosage: 300 MG, UNK
     Route: 065
  4. LAMOTRIGIL [Concomitant]
     Indication: PRODUCT USED FOR UNKNOWN INDICATION
     Dosage: 100 MG, QD
     Route: 065
     Dates: start: 20150810, end: 20150810
  5. FOLIC ACID. [Concomitant]
     Active Substance: FOLIC ACID
     Indication: PROPHYLAXIS
     Dosage: 10 MG, QD
     Route: 065
  6. OMEPRAZOLE. [Concomitant]
     Active Substance: OMEPRAZOLE
     Indication: GASTRIC DISORDER
     Dosage: 20 MG, QD
     Route: 065
  7. LAMICTAL [Concomitant]
     Active Substance: LAMOTRIGINE
     Indication: SEIZURE
     Dosage: UNK
     Route: 065
  8. ACLASTA [Suspect]
     Active Substance: ZOLEDRONIC ACID
     Indication: OSTEOPOROSIS
     Dosage: 1 DF (5 MG/100 ML), Q12MO
     Route: 065
     Dates: start: 20120814, end: 20120814
  9. KOPODEX [Concomitant]
     Active Substance: LEVETIRACETAM
     Indication: SEIZURE
     Dosage: 500 MG, QD
     Route: 065
     Dates: start: 201201
  10. RIVOTRIL [Concomitant]
     Active Substance: CLONAZEPAM
     Indication: PRODUCT USED FOR UNKNOWN INDICATION
     Dosage: 1 MG, QD
     Route: 065
  11. KOPODEX [Concomitant]
     Active Substance: LEVETIRACETAM
     Indication: DIZZINESS
  12. TRILEPTAL [Suspect]
     Active Substance: OXCARBAZEPINE
     Indication: SEIZURE
     Dosage: 600 MG, QD
     Route: 065
  13. SINOGAN [Concomitant]
     Active Substance: LEVOMEPROMAZINE
     Indication: SLEEP DISORDER
     Dosage: 12.5 MG, QD (6 YEARS AGO)
     Route: 065
  14. DIFENILHIDANTOINA//PHENYTOIN [Concomitant]
     Indication: SEIZURE
     Dosage: 100 MG, QD
     Route: 065

REACTIONS (10)
  - Headache [Unknown]
  - Malaise [Unknown]
  - Oral disorder [Unknown]
  - Arthralgia [Unknown]
  - Pain in extremity [Unknown]
  - Abdominal pain upper [Unknown]
  - Dizziness [Unknown]
  - Seizure [Unknown]
  - Feeling abnormal [Unknown]
  - Muscle spasms [Unknown]
